FAERS Safety Report 25737915 (Version 2)
Quarter: 2025Q3

REPORT INFORMATION
  Report Type: Report from Study
  Country: CA (occurrence: CA)
  Receive Date: 20250829
  Receipt Date: 20250904
  Transmission Date: 20251021
  Serious: Yes (Hospitalization, Other)
  Sender: ABBVIE
  Company Number: CA-ABBVIE-6284316

PATIENT
  Age: 55 Year
  Sex: Male

DRUGS (2)
  1. SKYRIZI [Suspect]
     Active Substance: RISANKIZUMAB-RZAA
     Indication: Crohn^s disease
     Route: 058
     Dates: start: 2025
  2. SKYRIZI [Suspect]
     Active Substance: RISANKIZUMAB-RZAA
     Indication: Crohn^s disease
     Dosage: LAST ADMIN DATE: 2025
     Route: 042
     Dates: start: 20250410

REACTIONS (7)
  - Lumbar vertebral fracture [Unknown]
  - Diarrhoea [Unknown]
  - Gait inability [Unknown]
  - Stress [Unknown]
  - Fracture pain [Not Recovered/Not Resolved]
  - Faeces soft [Unknown]
  - Suicide attempt [Unknown]

NARRATIVE: CASE EVENT DATE: 20250101
